FAERS Safety Report 11239806 (Version 1)
Quarter: 2015Q3

REPORT INFORMATION
  Report Type: Spontaneous
  Country: US (occurrence: None)
  Receive Date: 20150701
  Receipt Date: 20150701
  Transmission Date: 20151125
  Serious: No
  Sender: FDA-Public Use
  Company Number: None

PATIENT

DRUGS (2)
  1. POTASSIUM CHLORIDE. [Suspect]
     Active Substance: POTASSIUM CHLORIDE
     Dosage: IV BAG; 100 ML
     Route: 042
  2. METRONIDAZOLE. [Suspect]
     Active Substance: METRONIDAZOLE
     Dosage: (5MG/ML); IV BAG; 100 ML
     Route: 042

REACTIONS (5)
  - Infusion site irritation [None]
  - Infusion site pain [None]
  - Product label confusion [None]
  - Drug dispensing error [None]
  - Wrong drug administered [None]
